FAERS Safety Report 4462682-8 (Version None)
Quarter: 2004Q3

REPORT INFORMATION
  Report Type: 
  Country: None (occurrence: None)
  Receive Date: 20040927
  Receipt Date: 20040914
  Transmission Date: 20050211
  Serious: Yes (Death)
  Sender: FDA-Public Use
  Company Number: 2003UW16014

PATIENT
  Age: 21 Year
  Sex: Female
  Weight: 95.2554 kg

DRUGS (8)
  1. SEROQUEL [Suspect]
     Indication: BIPOLAR DISORDER
     Dates: start: 20010918, end: 20011123
  2. SEROQUEL [Suspect]
     Indication: SCHIZOPHRENIA
     Dates: start: 20010918, end: 20011123
  3. ZYPREXA [Suspect]
     Indication: BIPOLAR DISORDER
     Dosage: 7.5 MG DAILY PO
     Route: 048
     Dates: start: 20010901, end: 20011123
  4. ZYPREXA [Suspect]
     Indication: SCHIZOPHRENIA
     Dosage: 7.5 MG DAILY PO
     Route: 048
     Dates: start: 20010901, end: 20011123
  5. ZYPREXA [Suspect]
     Indication: BIPOLAR DISORDER
     Dosage: 15 MG DAILY PO
     Route: 048
     Dates: start: 20010902
  6. ZYPREXA [Suspect]
     Indication: SCHIZOPHRENIA
     Dosage: 15 MG DAILY PO
     Route: 048
     Dates: start: 20010902
  7. ATIVAN [Concomitant]
  8. VISTARIL [Concomitant]

REACTIONS (16)
  - AGITATION [None]
  - BLOOD CHLORIDE INCREASED [None]
  - BLOOD POTASSIUM INCREASED [None]
  - BLOOD SODIUM INCREASED [None]
  - BLOOD UREA INCREASED [None]
  - COMA [None]
  - CONFUSIONAL STATE [None]
  - HEPATIC STEATOSIS [None]
  - METABOLIC DISORDER [None]
  - OBSESSIVE-COMPULSIVE DISORDER [None]
  - PANCREATIC NECROSIS [None]
  - PANCREATITIS HAEMORRHAGIC [None]
  - PRESSURE OF SPEECH [None]
  - REPETITIVE SPEECH [None]
  - STEATORRHOEA [None]
  - TOXICOLOGIC TEST ABNORMAL [None]
